FAERS Safety Report 16257008 (Version 3)
Quarter: 2019Q3

REPORT INFORMATION
  Report Type: Spontaneous
  Country: US (occurrence: US)
  Receive Date: 20190430
  Receipt Date: 20190719
  Transmission Date: 20191004
  Serious: Yes (Hospitalization, Other)
  Sender: FDA-Public Use
  Company Number: US-PFIZER INC-2019182954

PATIENT
  Age: 87 Year
  Sex: Female

DRUGS (1)
  1. XALKORI [Suspect]
     Active Substance: CRIZOTINIB
     Indication: LUNG NEOPLASM MALIGNANT
     Dosage: 250 MG, UNK
     Dates: start: 20190408, end: 20190415

REACTIONS (10)
  - Kidney infection [Unknown]
  - Nausea [Unknown]
  - Visual impairment [Unknown]
  - Shock [Unknown]
  - Balance disorder [Unknown]
  - Cystitis [Unknown]
  - Intestinal obstruction [Unknown]
  - Dizziness [Unknown]
  - White blood cell count decreased [Unknown]
  - Candida infection [Unknown]

NARRATIVE: CASE EVENT DATE: 201904
